FAERS Safety Report 21911788 (Version 2)
Quarter: 2023Q1

REPORT INFORMATION
  Report Type: Spontaneous
  Country: PL (occurrence: PL)
  Receive Date: 20230125
  Receipt Date: 20230303
  Transmission Date: 20230418
  Serious: Yes (Life-Threatening)
  Sender: FDA-Public Use
  Company Number: PL-009507513-2301POL007052

PATIENT

DRUGS (4)
  1. BRIDION [Suspect]
     Active Substance: SUGAMMADEX
     Indication: Neuromuscular blockade reversal
     Dosage: 0.5 MILLIGRAM/KILOGRAM, ONCE
  2. MIDAZOLAM [Concomitant]
     Active Substance: MIDAZOLAM
     Dosage: 0.2 MILLIGRAM/KILOGRAM, ONCE
  3. PROPOFOL [Concomitant]
     Active Substance: PROPOFOL
     Dosage: CONTINUOUS INFUSION
  4. ROCURONIUM BROMIDE [Concomitant]
     Active Substance: ROCURONIUM BROMIDE
     Indication: Endotracheal intubation
     Dosage: 0.6 MILLIGRAM/KILOGRAM

REACTIONS (2)
  - Paradoxical drug reaction [Unknown]
  - Off label use [Unknown]
